FAERS Safety Report 20215425 (Version 1)
Quarter: 2021Q4

REPORT INFORMATION
  Report Type: Spontaneous
  Country: US (occurrence: US)
  Receive Date: 20211222
  Receipt Date: 20211222
  Transmission Date: 20220303
  Serious: Yes (Other)
  Sender: FDA-Public Use
  Company Number: US-BEH-2021139352

PATIENT
  Sex: Male

DRUGS (2)
  1. IDELVION [Suspect]
     Active Substance: COAGULATION FACTOR IX RECOMBINANT HUMAN
     Indication: X-linked chromosomal disorder
     Dosage: 4552 INTERNATIONAL UNIT, QW
     Route: 058
     Dates: start: 20211203
  2. IDELVION [Suspect]
     Active Substance: COAGULATION FACTOR IX RECOMBINANT HUMAN
     Indication: X-linked chromosomal disorder
     Dosage: 4552 INTERNATIONAL UNIT, QW
     Route: 058
     Dates: start: 20211203

REACTIONS (4)
  - Haemarthrosis [Unknown]
  - No adverse event [Unknown]
  - Off label use [Unknown]
  - Off label use [Unknown]
